FAERS Safety Report 5495075-5 (Version None)
Quarter: 2007Q4

REPORT INFORMATION
  Report Type: 
  Country: None (occurrence: None)
  Receive Date: 20071024
  Receipt Date: 20071012
  Transmission Date: 20080405
  Serious: Yes (Hospitalization, Other)
  Sender: FDA-Public Use
  Company Number: US-WYE-H00747807

PATIENT
  Sex: Female

DRUGS (2)
  1. PREMARIN [Suspect]
  2. PREMPHASE 14/14 [Suspect]

REACTIONS (1)
  - BREAST CANCER METASTATIC [None]
